FAERS Safety Report 8551557-0 (Version None)
Quarter: 2012Q3

REPORT INFORMATION
  Report Type: 
  Country: None (occurrence: None)
  Receive Date: 20120730
  Receipt Date: 20120727
  Transmission Date: 20120928
  Serious: No
  Sender: FDA-Public Use
  Company Number: US-BAYER-2012-076114

PATIENT
  Age: 54 Year
  Sex: Male

DRUGS (6)
  1. METFORMIN HYDROCHLORIDE [Concomitant]
  2. LEVITRA [Suspect]
     Indication: ERECTILE DYSFUNCTION
     Dosage: 20 MG 1 HOUR PRIOR TO SEX
     Dates: start: 20100101
  3. BENICAR [Concomitant]
  4. ASPIRIN [Concomitant]
  5. JANUVIA [Concomitant]
  6. GLIPIZIDE [Concomitant]

REACTIONS (1)
  - ERECTILE DYSFUNCTION [None]
